FAERS Safety Report 5391769-0 (Version None)
Quarter: 2007Q3

REPORT INFORMATION
  Report Type: 
  Country: None (occurrence: None)
  Receive Date: 20070717
  Receipt Date: 20070704
  Transmission Date: 20080115
  Serious: Yes (Other)
  Sender: FDA-Public Use
  Company Number: 16934

PATIENT
  Age: 6 Year
  Sex: Male
  Weight: 17.4 kg

DRUGS (2)
  1. METHOTREXATE [Suspect]
     Indication: UVEITIS
     Dosage: 15 MG FREQ SC
     Route: 058
     Dates: start: 20051201, end: 20070611
  2. INFLIXIMAB [Concomitant]

REACTIONS (1)
  - HEPATIC CIRRHOSIS [None]
